FAERS Safety Report 6479257-1 (Version None)
Quarter: 2009Q4

REPORT INFORMATION
  Report Type: 
  Country: None (occurrence: None)
  Receive Date: 20091207
  Receipt Date: 20090224
  Transmission Date: 20100525
  Serious: No
  Sender: FDA-Public Use
  Company Number: US-AMGEN-KDL334795

PATIENT
  Sex: Female
  Weight: 70.8 kg

DRUGS (6)
  1. ENBREL [Suspect]
     Indication: SYSTEMIC LUPUS ERYTHEMATOSUS
     Route: 058
     Dates: start: 20081224
  2. PLAQUENIL [Concomitant]
  3. LEFLUNOMIDE [Concomitant]
  4. CELEBREX [Concomitant]
  5. CITRACAL [Concomitant]
  6. OMEPRAZOLE [Concomitant]

REACTIONS (2)
  - INJECTION SITE ERYTHEMA [None]
  - INJECTION SITE PRURITUS [None]
